FAERS Safety Report 4583836-6 (Version None)
Quarter: 2005Q1

REPORT INFORMATION
  Report Type: 
  Country: None (occurrence: None)
  Receive Date: 20050211
  Receipt Date: 20050128
  Transmission Date: 20050727
  Serious: Yes (Life-Threatening)
  Sender: FDA-Public Use
  Company Number: 2005021129

PATIENT
  Age: 84 Year
  Sex: Male

DRUGS (6)
  1. NIFEDIPINE [Suspect]
     Indication: ILL-DEFINED DISORDER
     Dosage: (20 MG,), ORAL
     Route: 048
  2. VASERETIC [Concomitant]
  3. PROTHIPENDYL HYDROCHLORIDE (PROTHIPENDYL HYDROCHLORIDE) [Concomitant]
  4. DIAZEPAM [Concomitant]
  5. HALOPERIDOL (HALOPERIDOL) [Concomitant]
  6. RISPERDAL [Concomitant]

REACTIONS (2)
  - ANGIONEUROTIC OEDEMA [None]
  - LARYNGEAL OEDEMA [None]
